FAERS Safety Report 8112825-X (Version None)
Quarter: 2012Q1

REPORT INFORMATION
  Report Type: 
  Country: None (occurrence: None)
  Receive Date: 20120203
  Receipt Date: 20120125
  Transmission Date: 20120608
  Serious: Yes (Other)
  Sender: FDA-Public Use
  Company Number: DE-JNJFOC-20111209193

PATIENT
  Sex: Female
  Weight: 68 kg

DRUGS (3)
  1. PALEXIA RETARD [Suspect]
     Dosage: TWICE A DAY
     Route: 048
  2. PALEXIA RETARD [Suspect]
     Indication: PRODUCT USED FOR UNKNOWN INDICATION
     Dosage: TWICE A DAY
     Route: 048
  3. PALEXIA RETARD [Suspect]
     Dosage: TWICE A DAY
     Route: 048
     Dates: start: 20111117, end: 20111205

REACTIONS (3)
  - RECTAL HAEMORRHAGE [None]
  - NAUSEA [None]
  - DIZZINESS [None]
